FAERS Safety Report 6022332-6 (Version None)
Quarter: 2008Q4

REPORT INFORMATION
  Report Type: 
  Country: None (occurrence: None)
  Receive Date: 20081230
  Receipt Date: 20081226
  Transmission Date: 20090506
  Serious: Yes (Hospitalization)
  Sender: FDA-Public Use
  Company Number: US-BRISTOL-MYERS SQUIBB COMPANY-14455711

PATIENT
  Age: 55 Year
  Sex: Female

DRUGS (10)
  1. ATAZANAVIR [Suspect]
  2. FENOFIBRATE [Suspect]
  3. ESTRADIOL [Suspect]
     Route: 062
  4. TRIMETHOPRIM + SULFAMETHOXAZOLE [Suspect]
  5. PROGESTERONE [Suspect]
  6. ABACAVIR [Suspect]
  7. LAMIVUDINE [Suspect]
  8. LANTUS [Suspect]
  9. INSULIN ASPART [Suspect]
  10. GABAPENTIN [Suspect]

REACTIONS (1)
  - PANCREATITIS ACUTE [None]
